FAERS Safety Report 5524959-4 (Version None)
Quarter: 2007Q4

REPORT INFORMATION
  Report Type: 
  Country: None (occurrence: None)
  Receive Date: 20071126
  Receipt Date: 20071112
  Transmission Date: 20080405
  Serious: Yes (Other)
  Sender: FDA-Public Use
  Company Number: US-ELI_LILLY_AND_COMPANY-US200711002508

PATIENT
  Sex: Female

DRUGS (4)
  1. CYMBALTA [Suspect]
     Dosage: 30 MG, UNK
     Dates: start: 20050101
  2. CYMBALTA [Suspect]
     Dosage: 30 MG, DAILY (1/D)
     Dates: end: 20071110
  3. CORGARD [Concomitant]
     Indication: ANTICOAGULANT THERAPY
     Dosage: 1 D/F, UNK
  4. ATENOLOL [Concomitant]
     Indication: BLOOD PRESSURE
     Dosage: 1 D/F, UNK

REACTIONS (4)
  - BLOOD PRESSURE ABNORMAL [None]
  - BLOOD PRESSURE INCREASED [None]
  - HOT FLUSH [None]
  - HYPERHIDROSIS [None]
